FAERS Safety Report 9341177 (Version 3)
Quarter: 2013Q3

REPORT INFORMATION
  Report Type: Report from Study
  Country: BR (occurrence: BR)
  Receive Date: 20130611
  Receipt Date: 20130726
  Transmission Date: 20140515
  Serious: Yes (Other)
  Sender: FDA-Public Use
  Company Number: BR-ROCHE-803626

PATIENT
  Age: 65 Year
  Sex: Female
  Weight: 58 kg

DRUGS (15)
  1. ACTEMRA [Suspect]
     Indication: RHEUMATOID ARTHRITIS
     Dosage: PATIENT RECEIVED TOCILIZUMAB INFUSIONS ON OCT, NOV, DEC, JAN, MAR, APR, MAY, JUN, JUL, AND AUG 2010.
     Route: 042
     Dates: start: 20101001, end: 201108
  2. ACTEMRA [Suspect]
     Indication: PSORIASIS
     Route: 042
     Dates: start: 201111, end: 201210
  3. ACTEMRA [Suspect]
     Route: 042
  4. ACTEMRA [Suspect]
     Route: 042
  5. DIGOXIN [Concomitant]
     Indication: CARDIAC MURMUR
     Route: 065
  6. NICORD [Concomitant]
     Indication: HYPERTENSION
     Route: 065
  7. FUROSEMIDE [Concomitant]
     Route: 065
  8. MELOXICAM [Concomitant]
     Indication: RHEUMATIC DISORDER
     Route: 065
  9. FAMOTIDINE [Concomitant]
     Route: 065
  10. DEFLAZACORT [Concomitant]
     Indication: RHEUMATIC DISORDER
     Route: 065
  11. CITALOPRAM [Concomitant]
  12. RANITIDINE [Concomitant]
  13. OMEGA 3 [Concomitant]
  14. CLONAZEPAM [Concomitant]
     Indication: INSOMNIA
  15. VITAMIN C [Concomitant]

REACTIONS (18)
  - Herpes zoster [Recovering/Resolving]
  - Arterial rupture [Unknown]
  - Cardiac arrest [Unknown]
  - Epistaxis [Recovered/Resolved]
  - Psoriasis [Recovering/Resolving]
  - Pain in extremity [Unknown]
  - Local swelling [Unknown]
  - Influenza [Not Recovered/Not Resolved]
  - Urinary tract infection [Recovered/Resolved]
  - Nasopharyngitis [Recovered/Resolved]
  - Rib fracture [Recovered/Resolved]
  - Malaise [Not Recovered/Not Resolved]
  - Pain [Not Recovered/Not Resolved]
  - Pain in extremity [Not Recovered/Not Resolved]
  - Pain in extremity [Not Recovered/Not Resolved]
  - Gait disturbance [Recovered/Resolved]
  - Tendon disorder [Not Recovered/Not Resolved]
  - Hand deformity [Not Recovered/Not Resolved]
